FAERS Safety Report 8695141 (Version 2)
Quarter: 2013Q4

REPORT INFORMATION
  Report Type: Spontaneous
  Country: US (occurrence: US)
  Receive Date: 20120731
  Receipt Date: 20131106
  Transmission Date: 20140711
  Serious: Yes (Hospitalization)
  Sender: FDA-Public Use
  Company Number: US-009507513-1207USA009848

PATIENT
  Sex: Female

DRUGS (18)
  1. COZAAR [Suspect]
     Route: 048
  2. SIMVASTATIN [Suspect]
  3. FURIX [Suspect]
  4. ISOPTIN [Suspect]
  5. DIGOXIN [Suspect]
  6. SERETIDE [Suspect]
  7. PREDNISOLONE [Suspect]
  8. BRICANYL TURBOHALER [Suspect]
  9. SERTRALINE HYDROCHLORIDE [Suspect]
  10. OXAPAX [Suspect]
  11. STILNOCT [Suspect]
  12. PAMOL [Suspect]
  13. PRADAXA [Suspect]
     Dosage: 150 MG, BID
     Route: 048
  14. SPIRIVA [Suspect]
  15. DUOVENT [Suspect]
  16. CONTALGIN [Suspect]
  17. BERODUAL [Suspect]
  18. KALEORID [Concomitant]

REACTIONS (3)
  - Iron deficiency anaemia [Unknown]
  - Abdominal pain upper [Unknown]
  - Gastric ulcer [Unknown]
